FAERS Safety Report 7949011-X (Version None)
Quarter: 2011Q4

REPORT INFORMATION
  Report Type: 
  Country: None (occurrence: None)
  Receive Date: 20111130
  Receipt Date: 20111118
  Transmission Date: 20120403
  Serious: Yes (Hospitalization, Other)
  Sender: FDA-Public Use
  Company Number: US-ELI_LILLY_AND_COMPANY-US201107006447

PATIENT
  Sex: Female
  Weight: 70.703 kg

DRUGS (11)
  1. THYROID TAB [Concomitant]
  2. FORTEO [Suspect]
     Dosage: 20 UG, QOD
     Route: 058
  3. CALCIUM [Concomitant]
  4. FORTEO [Suspect]
     Indication: OSTEOPOROSIS
     Dosage: 20 UG, QD
     Route: 058
     Dates: start: 20100101, end: 20110708
  5. ZINC [Concomitant]
  6. VITAMIN D [Concomitant]
  7. NIFEREX [Concomitant]
  8. SYNTHROID [Concomitant]
     Indication: HYPOTHYROIDISM
     Dosage: UNK
  9. FORTEO [Suspect]
     Dosage: 20 UG, QD
     Route: 058
  10. MAGNESIUM SULFATE [Concomitant]
  11. VITAMIN TAB [Concomitant]

REACTIONS (5)
  - BONE PAIN [None]
  - HIP FRACTURE [None]
  - MYALGIA [None]
  - INTENTIONAL DRUG MISUSE [None]
  - ARTHRALGIA [None]
